FAERS Safety Report 8909393 (Version 1)
Quarter: 2012Q4

REPORT INFORMATION
  Report Type: 
  Country: US (occurrence: US)
  Receive Date: 20121115
  Receipt Date: 20121115
  Transmission Date: 20130627
  Serious: Yes (Other)
  Sender: FDA-Public Use
  Company Number: US-UCBSA-070680

PATIENT
  Age: 4 Year
  Sex: Male

DRUGS (2)
  1. LEVETIRACETAM [Suspect]
     Indication: CONVULSION
  2. LEVETIRACETAM [Suspect]
     Indication: STATUS EPILEPTICUS

REACTIONS (4)
  - Status epilepticus [Unknown]
  - Convulsion [Unknown]
  - Body temperature increased [Unknown]
  - Myoclonus [Unknown]
